FAERS Safety Report 26116827 (Version 2)
Quarter: 2025Q4

REPORT INFORMATION
  Report Type: Spontaneous
  Country: CN (occurrence: CN)
  Receive Date: 20251203
  Receipt Date: 20251215
  Transmission Date: 20260118
  Serious: Yes (Other)
  Sender: ALEXION PHARMACEUTICALS
  Company Number: CN-AstraZeneca-CH-01003070A

PATIENT
  Sex: Male

DRUGS (1)
  1. IMFINZI [Suspect]
     Active Substance: DURVALUMAB
     Dosage: UNK
     Route: 065

REACTIONS (4)
  - Brain oedema [Unknown]
  - Metastases to central nervous system [Unknown]
  - Nerve compression [Unknown]
  - Mobility decreased [Unknown]
